FAERS Safety Report 5271941-0 (Version None)
Quarter: 2007Q1

REPORT INFORMATION
  Report Type: 
  Country: None (occurrence: None)
  Receive Date: 20061214
  Receipt Date: 20060717
  Transmission Date: 20070707
  Serious: Yes (Hospitalization, Other)
  Sender: FDA-Public Use
  Company Number: 2006090623

PATIENT
  Age: 52 Year
  Sex: Male
  Weight: 88.4514 kg

DRUGS (11)
  1. BEXTRA [Suspect]
     Indication: ARTHRITIS
     Dosage: 20 MG (20 MG, 1 IN 1 D)
     Dates: end: 20040901
  2. TOPROL-XL [Concomitant]
  3. NITROQUICK (GLYCERYL TRINITRATE) [Concomitant]
  4. ASPIRIN [Concomitant]
  5. IMDUR [Concomitant]
  6. PLAVIX [Concomitant]
  7. CARDIZEM [Concomitant]
  8. PROTONIX [Concomitant]
  9. ALBUTEROL [Concomitant]
  10. SPIRIVA [Concomitant]
  11. ADVAIR DISKUS 100/50 [Concomitant]

REACTIONS (1)
  - MYOCARDIAL INFARCTION [None]
